FAERS Safety Report 20041037 (Version 4)
Quarter: 2024Q4

REPORT INFORMATION
  Report Type: Spontaneous
  Country: US (occurrence: US)
  Receive Date: 20211107
  Receipt Date: 20241209
  Transmission Date: 20250114
  Serious: Yes (Hospitalization)
  Sender: BRISTOL-MYERS SQUIBB COMPANY
  Company Number: US-BRISTOL-MYERS SQUIBB COMPANY-BMS-2021-113154

PATIENT
  Age: 74 Year
  Sex: Female

DRUGS (2)
  1. DASATINIB [Suspect]
     Active Substance: DASATINIB
     Indication: Chronic myeloid leukaemia
     Dosage: 100 MILLIGRAM, QD,MT2463A EXPIRY DATE:29-FEB-2024
     Route: 048
     Dates: start: 20211001
  2. DASATINIB [Suspect]
     Active Substance: DASATINIB
     Route: 048
     Dates: start: 202109

REACTIONS (5)
  - Swelling face [Unknown]
  - Periorbital swelling [Unknown]
  - Rash [Unknown]
  - Weight increased [Unknown]
  - Illness [Unknown]
